FAERS Safety Report 4649106-2 (Version None)
Quarter: 2005Q2

REPORT INFORMATION
  Report Type: 
  Country: None (occurrence: None)
  Receive Date: 20050429
  Receipt Date: 20041203
  Transmission Date: 20051028
  Serious: Yes (Other)
  Sender: FDA-Public Use
  Company Number: GB-GLAXOSMITHKLINE-B0359623A

PATIENT
  Sex: Male

DRUGS (3)
  1. PAROXETINE HCL [Suspect]
     Dosage: 30MG PER DAY
     Route: 065
     Dates: start: 19990101
  2. DOTHIEPIN HYDROCHLORIDE [Concomitant]
     Route: 065
  3. DUTONIN [Concomitant]
     Route: 065

REACTIONS (4)
  - AGGRESSION [None]
  - COMPLETED SUICIDE [None]
  - ERECTILE DYSFUNCTION [None]
  - ILL-DEFINED DISORDER [None]
